FAERS Safety Report 5494852-4 (Version None)
Quarter: 2007Q4

REPORT INFORMATION
  Report Type: 
  Country: None (occurrence: None)
  Receive Date: 20071022
  Receipt Date: 20071005
  Transmission Date: 20080405
  Serious: Yes (Hospitalization)
  Sender: FDA-Public Use
  Company Number: 2007SP020363

PATIENT
  Sex: Female

DRUGS (3)
  1. LORATADINE AND PSEUDOEPHEDRINE SULFATE [Suspect]
     Indication: INFLUENZA
     Dates: start: 20070928, end: 20070929
  2. ERYTHROMYCIN [Concomitant]
  3. DEXTROMETHORPHAN HYDROBROMIDE [Concomitant]

REACTIONS (4)
  - EYE MOVEMENT DISORDER [None]
  - HYPOTONIA [None]
  - MUSCLE SPASTICITY [None]
  - SOMNOLENCE [None]
